FAERS Safety Report 5705791-5 (Version None)
Quarter: 2008Q2

REPORT INFORMATION
  Report Type: 
  Country: None (occurrence: None)
  Receive Date: 20080414
  Receipt Date: 20080414
  Transmission Date: 20081010
  Serious: Yes (Life-Threatening, Hospitalization, Disabling, Congenital Anomaly, Other)
  Sender: FDA-Public Use
  Company Number: None

PATIENT
  Age: 17 Year
  Sex: Female
  Weight: 58.9676 kg

DRUGS (1)
  1. MIRENA [Suspect]
     Indication: CONTRACEPTION
     Dosage: 1 REDUCE OVULATION VAG
     Route: 067
     Dates: start: 20070903, end: 20080412

REACTIONS (3)
  - FEELING ABNORMAL [None]
  - IUCD COMPLICATION [None]
  - UNEVALUABLE EVENT [None]
